FAERS Safety Report 9669062 (Version 3)
Quarter: 2013Q4

REPORT INFORMATION
  Report Type: Spontaneous
  Country: US (occurrence: US)
  Receive Date: 20131105
  Receipt Date: 20131213
  Transmission Date: 20140711
  Serious: Yes (Death, Hospitalization)
  Sender: FDA-Public Use
  Company Number: US-SA-2013SA111904

PATIENT
  Age: 59 Year
  Sex: Female
  Weight: 98 kg

DRUGS (5)
  1. LOVENOX [Suspect]
     Indication: PULMONARY EMBOLISM
     Route: 051
     Dates: start: 20130417, end: 20130517
  2. ATENOLOL [Concomitant]
     Indication: BLOOD PRESSURE
  3. OMEPRAZOLE [Concomitant]
     Indication: HYPERCHLORHYDRIA
  4. MINOXIDIL [Concomitant]
     Indication: BLOOD PRESSURE
  5. WARFARIN [Concomitant]
     Indication: ANTIPHOSPHOLIPID SYNDROME

REACTIONS (2)
  - Metastatic renal cell carcinoma [Fatal]
  - Renal neoplasm [Unknown]
